FAERS Safety Report 10898447 (Version 1)
Quarter: 2015Q1

REPORT INFORMATION
  Report Type: Spontaneous
  Country: US (occurrence: US)
  Receive Date: 20150309
  Receipt Date: 20150309
  Transmission Date: 20150721
  Serious: No
  Sender: FDA-Public Use
  Company Number: US-ABBVIE-14P-163-1225266-00

PATIENT
  Age: 43 Year
  Sex: Female
  Weight: 70.37 kg

DRUGS (3)
  1. IRON [Concomitant]
     Active Substance: IRON
     Indication: MINERAL SUPPLEMENTATION
  2. LUPRON DEPOT [Suspect]
     Active Substance: LEUPROLIDE ACETATE
     Indication: UTERINE LEIOMYOMA
     Route: 030
     Dates: start: 20140403
  3. MOTRIN [Concomitant]
     Active Substance: IBUPROFEN
     Indication: PAIN

REACTIONS (2)
  - Abdominal pain [Not Recovered/Not Resolved]
  - Menstrual disorder [Not Recovered/Not Resolved]

NARRATIVE: CASE EVENT DATE: 201404
